FAERS Safety Report 4620140-1 (Version None)
Quarter: 2005Q1

REPORT INFORMATION
  Report Type: 
  Country: None (occurrence: None)
  Receive Date: 20050322
  Receipt Date: 20050322
  Transmission Date: 20050727
  Serious: Yes (Hospitalization)
  Sender: FDA-Public Use
  Company Number: None

PATIENT
  Age: 18 Year
  Sex: Female
  Weight: 74.8435 kg

DRUGS (1)
  1. CIPROFLOXACIN [Suspect]
     Indication: CONJUNCTIVITIS
     Dosage: 1 DROP EYE  TWICE A DAY OPHTHALMIC
     Route: 047
     Dates: start: 20050221, end: 20050221

REACTIONS (11)
  - APPLICATION SITE IRRITATION [None]
  - APPLICATION SITE PHOTOSENSITIVITY REACTION [None]
  - APPLICATION SITE REACTION [None]
  - CAUSTIC INJURY [None]
  - CORNEAL DISORDER [None]
  - CRYING [None]
  - EYE IRRITATION [None]
  - INJURY CORNEAL [None]
  - INSOMNIA [None]
  - PAIN [None]
  - PHARMACEUTICAL PRODUCT COMPLAINT [None]
